FAERS Safety Report 19195090 (Version 1)
Quarter: 2021Q2

REPORT INFORMATION
  Report Type: Spontaneous
  Country: GB (occurrence: GB)
  Receive Date: 20210429
  Receipt Date: 20210429
  Transmission Date: 20210717
  Serious: Yes (Other)
  Sender: FDA-Public Use
  Company Number: GB-TEVA-2021-GB-1905644

PATIENT
  Age: 91 Year
  Sex: Male
  Weight: 76 kg

DRUGS (10)
  1. MEMANTINE. [Suspect]
     Active Substance: MEMANTINE
     Indication: MUSCULAR WEAKNESS
     Dosage: 10 MG,
     Route: 048
  2. TAMSULOSIN [Concomitant]
     Active Substance: TAMSULOSIN
     Dosage: 400 MICROGRAM DAILY;
     Dates: start: 20210128
  3. ASPIRIN. [Concomitant]
     Active Substance: ASPIRIN
     Dosage: 75 MILLIGRAM DAILY; WITH FOOD
     Dates: start: 20210128
  4. FINASTERIDE. [Concomitant]
     Active Substance: FINASTERIDE
     Dosage: 5 MILLIGRAM DAILY;
     Dates: start: 20210128
  5. ATORVASTATIN [Concomitant]
     Active Substance: ATORVASTATIN
     Dosage: 10 MILLIGRAM DAILY; NOTES FOR PATIENT: PLEASE BOOK APPOINTMENT FOR A CHOLESTEROL BLOOD TEST AND BLO.
     Dates: start: 20210121
  6. BIMATOPROST. [Concomitant]
     Active Substance: BIMATOPROST
     Dosage: 1 GTT DAILY; DROP INTO AFFECTED EYE(S) ONCE IN THE EVENING. 100MICROGRAMS/ML
     Dates: start: 20210128
  7. BRIMONIDINE [Concomitant]
     Active Substance: BRIMONIDINE TARTRATE
     Dosage: 4 DOSAGE FORMS DAILY; BOTH EYES. 2MG/ML
     Dates: start: 20210128
  8. MEDIDERM [Concomitant]
     Dosage: AS DIRECTED
     Dates: start: 20210302
  9. MELATONIN [Concomitant]
     Active Substance: MELATONIN
     Dosage: 2 MILLIGRAM DAILY; TO BE TAKEN AT NIGHT NOTES FOR PATIENT: PLEASE ARRANGE A TELEPHONE REVIEW OF MELA
     Dates: start: 20210122
  10. TIMOLOL. [Concomitant]
     Active Substance: TIMOLOL
     Dosage: 4 DOSAGE FORMS DAILY; BOTH EYES. 5MG/ML
     Dates: start: 20210128

REACTIONS (1)
  - Depressive symptom [Not Recovered/Not Resolved]

NARRATIVE: CASE EVENT DATE: 20210409
